FAERS Safety Report 8793063 (Version 2)
Quarter: 2012Q4

REPORT INFORMATION
  Report Type: Report from Study
  Country: JP (occurrence: JP)
  Receive Date: 20120918
  Receipt Date: 20121022
  Transmission Date: 20130627
  Serious: Yes (Life-Threatening)
  Sender: FDA-Public Use
  Company Number: JP-VERTEX PHARMACEUTICAL INC.-AE-2012-007797

PATIENT
  Age: 51 Year
  Sex: Male

DRUGS (19)
  1. VX-950 [Suspect]
     Indication: HEPATITIS C
     Dosage: 2250 mg, qd
     Route: 048
     Dates: start: 20120124, end: 20120312
  2. VX-950 [Suspect]
     Dosage: 1500 mg, qd
     Route: 048
     Dates: start: 20120313, end: 20120417
  3. RIBAVIRIN [Suspect]
     Indication: HEPATITIS C
     Dosage: 800 mg, qd
     Route: 048
     Dates: start: 20120124, end: 20120228
  4. RIBAVIRIN [Suspect]
     Dosage: 400 mg, qd
     Route: 048
     Dates: start: 20120229, end: 20120305
  5. RIBAVIRIN [Suspect]
     Dosage: 200 mg, qd
     Route: 048
     Dates: start: 20120306, end: 20120519
  6. PEGINTRON                          /01543001/ [Suspect]
     Indication: HEPATITIS C
     Route: 058
     Dates: start: 20120124, end: 20120515
  7. SERENACE [Suspect]
     Indication: SEDATION
     Route: 042
     Dates: start: 20120520, end: 20120521
  8. ADALAT-CR [Concomitant]
     Route: 048
     Dates: end: 20120519
  9. ACINON [Concomitant]
     Route: 048
     Dates: start: 20120124, end: 20120519
  10. DIOVAN [Concomitant]
     Route: 048
     Dates: end: 20120417
  11. LOXONIN [Concomitant]
     Route: 048
     Dates: start: 20120124
  12. WYTENS [Concomitant]
     Route: 048
     Dates: end: 20120519
  13. MEROPEN [Concomitant]
     Route: 042
     Dates: start: 20120519, end: 20120528
  14. OMEPRAL [Concomitant]
     Route: 042
     Dates: start: 20120519, end: 20120525
  15. HEPARIN AND PREPARATIONS [Concomitant]
     Route: 042
     Dates: start: 20120519, end: 20120529
  16. MIDAZOLAM [Concomitant]
     Route: 042
     Dates: start: 20120519, end: 20120525
  17. FENTANYL [Concomitant]
     Route: 042
     Dates: start: 20120519, end: 20120525
  18. BAKTAR [Concomitant]
     Route: 048
     Dates: start: 20120524, end: 20120529
  19. PARIET [Concomitant]
     Route: 048
     Dates: start: 20120526

REACTIONS (4)
  - Ventricular fibrillation [Recovered/Resolved]
  - Cardiac failure [Recovered/Resolved]
  - Interstitial lung disease [Recovered/Resolved]
  - Pleural effusion [Recovered/Resolved]
